FAERS Safety Report 22599521 (Version 1)
Quarter: 2023Q2

REPORT INFORMATION
  Report Type: Spontaneous
  Country: GB (occurrence: GB)
  Receive Date: 20230614
  Receipt Date: 20230614
  Transmission Date: 20230721
  Serious: Yes (Other)
  Sender: FDA-Public Use
  Company Number: None

PATIENT
  Age: 73 Year
  Sex: Female
  Weight: 42 kg

DRUGS (41)
  1. CLARITHROMYCIN [Suspect]
     Active Substance: CLARITHROMYCIN
     Indication: Product used for unknown indication
     Dosage: UNK
     Route: 065
  2. BENDROFLUMETHIAZIDE [Concomitant]
     Active Substance: BENDROFLUMETHIAZIDE
     Dosage: 1 DOSAGE FORM, QD (EACH MORNING  FOR FLUID)
     Route: 065
     Dates: start: 20211116
  3. BETAMETHASONE VALERATE [Concomitant]
     Active Substance: BETAMETHASONE VALERATE
     Dosage: APPLY AS DIRECTED BY DERMATOLOGY
     Route: 065
     Dates: start: 20230607
  4. CANDESARTAN [Concomitant]
     Active Substance: CANDESARTAN
     Dosage: 1 DOSAGE FORM, QD
     Route: 065
     Dates: start: 20220406
  5. CLOTRIMAZOLE [Concomitant]
     Active Substance: CLOTRIMAZOLE
     Dosage: 1 DOSAGE FORM, QD (INSERT AT NIGHT)
     Route: 065
     Dates: start: 20210423
  6. CEPHALEXIN [Concomitant]
     Active Substance: CEPHALEXIN
     Indication: Prophylaxis
     Dosage: 1 DF, QD (FOR PREVENTION. DOUBLE UP DURING INF)
     Route: 065
     Dates: start: 20210423
  7. Cetraben [Concomitant]
     Dosage: USE AS A SOAP SUBSTITUTE AND MOISTURISER AS PER...
     Route: 065
     Dates: start: 20230601
  8. CLINDAMYCIN [Concomitant]
     Active Substance: CLINDAMYCIN
     Dosage: 2 DOSAGE FORM, QID
     Route: 065
     Dates: start: 20230427, end: 20230504
  9. CLOBETASOL PROPIONATE [Concomitant]
     Active Substance: CLOBETASOL PROPIONATE
     Dosage: APPLY ALTERNATE DAYS FOR 1 WEEK THEN TWICE WEEKLY
     Route: 065
     Dates: start: 20230517
  10. AMOXICILLIN\CLAVULANATE POTASSIUM [Concomitant]
     Active Substance: AMOXICILLIN\CLAVULANATE POTASSIUM
     Dosage: 1 DOSAGE FORM, TID
     Route: 065
     Dates: start: 20230515, end: 20230525
  11. DERMOL [Concomitant]
     Active Substance: BENZALKONIUM CHLORIDE\CHLORHEXIDINE HYDROCHLORIDE\ISOPROPYL MYRISTATE\PARAFFIN
     Dosage: USE AS DIRECTED
     Route: 065
     Dates: start: 20230414
  12. DIAZEPAM [Concomitant]
     Active Substance: DIAZEPAM
     Dosage: 1 DOSAGE FORM, QD
     Route: 065
     Dates: start: 20210423
  13. DICLOFENAC DIETHYLAMINE [Concomitant]
     Active Substance: DICLOFENAC DIETHYLAMINE
     Dosage: 1 DOSAGE FORM, BID (APPLY)
     Route: 065
     Dates: start: 20210423
  14. ISOPROPYL MYRISTATE\MINERAL OIL [Concomitant]
     Active Substance: ISOPROPYL MYRISTATE\MINERAL OIL
     Dosage: APPLY 3-4 TIMES DAILY. CAN ALSO BE USED INSTEAD
     Route: 065
     Dates: start: 20230602
  15. DOXAZOSIN [Concomitant]
     Active Substance: DOXAZOSIN MESYLATE
     Dosage: 1 DOSAGE FORM, QD (IN THE EVENING)
     Route: 065
     Dates: start: 20230517
  16. ESTRADIOL [Concomitant]
     Active Substance: ESTRADIOL
     Dosage: 0.5 DOSAGE FORM, QD
     Route: 065
     Dates: start: 20210423
  17. ESTRIOL [Concomitant]
     Active Substance: ESTRIOL
     Dosage: 1 DOSAGE FORM, QD (APPLY AT NIGHT FOR 2 WEEKS AND THEN)
     Route: 065
     Dates: start: 20210423
  18. FEXOFENADINE [Concomitant]
     Active Substance: FEXOFENADINE HYDROCHLORIDE
     Indication: Antiallergic therapy
     Dosage: 1 DOSAGE FORM, QD
     Route: 065
     Dates: start: 20210423
  19. FLUCONAZOLE [Concomitant]
     Active Substance: FLUCONAZOLE
     Dosage: 1 DOSAGE FORM, QW
     Route: 065
     Dates: start: 20220505
  20. FLUTICASONE PROPIONATE [Concomitant]
     Active Substance: FLUTICASONE PROPIONATE
     Dosage: 1 DOSAGE FORM, BID (ONE SPRAY INTO EACH NOSTRIL TWICE DAILY USING)
     Route: 065
     Dates: start: 20210423
  21. FUSIDIC ACID [Concomitant]
     Active Substance: FUSIDIC ACID
     Dosage: 1 DOSAGE FORM, BID (IF INDICATED)
     Route: 065
     Dates: start: 20230123
  22. GLYCERIN [Concomitant]
     Active Substance: GLYCERIN
     Indication: Constipation
     Dosage: 1 DOSAGE FORM (AS NECESSARY)
     Route: 065
     Dates: start: 20210427, end: 20230517
  23. HYDROCORTISONE [Concomitant]
     Active Substance: HYDROCORTISONE
     Dosage: 1 DOSAGE FORM, BID
     Route: 065
     Dates: start: 20210423
  24. BUTYLSCOPOLAMINE BROMIDE [Concomitant]
     Active Substance: BUTYLSCOPOLAMINE BROMIDE
     Dosage: TAKE ONE OR TWO TABLETS FOUR TIMES A DAY
     Route: 065
     Dates: start: 20210423
  25. LANSOPRAZOLE [Concomitant]
     Active Substance: LANSOPRAZOLE
     Dosage: 1 DOSAGE FORM, QD
     Route: 065
     Dates: start: 20210423
  26. LERCANIDIPINE HYDROCHLORIDE [Concomitant]
     Active Substance: LERCANIDIPINE HYDROCHLORIDE
     Dosage: 1 DOSAGE FORM, QD
     Route: 065
     Dates: start: 20230414, end: 20230512
  27. LOPERAMIDE [Concomitant]
     Active Substance: LOPERAMIDE
     Dosage: TAKE ONE OR TWO CAPSULES FOUR TIMES A DAY
     Route: 065
     Dates: start: 20211116
  28. MORPHINE SULFATE [Concomitant]
     Active Substance: MORPHINE SULFATE
     Dosage: 2 DF (2 TO BE TAKEN IN THE MORNING AND 2)
     Route: 065
     Dates: start: 20210423
  29. NAPROXEN [Concomitant]
     Active Substance: NAPROXEN
     Dosage: 1 DOSAGE FORM, BID (TAKE ONE TWICE DAILY)
     Route: 065
     Dates: start: 20210423
  30. NIFEDIPINE [Concomitant]
     Active Substance: NIFEDIPINE
     Indication: Raynaud^s phenomenon
     Dosage: 1 DOSAGE FORM, TID (FOR RAYNAUDS DUR...)
     Route: 065
     Dates: start: 20210423
  31. PREDNISOLONE [Concomitant]
     Active Substance: PREDNISOLONE
     Dosage: 4 MANE
     Route: 065
     Dates: start: 20230503, end: 20230531
  32. ALBUTEROL [Concomitant]
     Active Substance: ALBUTEROL
     Dosage: 2 DOSAGE FORM
     Route: 055
     Dates: start: 20210423
  33. DIBUCAINE HYDROCHLORIDE\PREDNISOLONE [Concomitant]
     Active Substance: DIBUCAINE HYDROCHLORIDE\PREDNISOLONE
     Dosage: 1 DF, BID (MORNING AND NIGHT AND AFTER EACH MOTION)
     Route: 065
     Dates: start: 20230605
  34. SENNA [Concomitant]
     Active Substance: SENNA LEAF\SENNOSIDES\SENNOSIDES A AND B
     Dosage: 1-2 AT NIGHT
     Route: 065
     Dates: start: 20210427
  35. CROMOLYN SODIUM [Concomitant]
     Active Substance: CROMOLYN SODIUM
     Dosage: 1 GTT DROPS, QID (AS NECESSARY, ONE DROP UP TO 4 TIMES/DAY, FOR A)
     Route: 065
     Dates: start: 20210423
  36. SOLIFENACIN [Concomitant]
     Active Substance: SOLIFENACIN
     Dosage: 1 DOSAGE FORM, QD (TAKE ONE ONCE A DAY)
     Route: 065
     Dates: start: 20220228
  37. SYMBICORT [Concomitant]
     Active Substance: BUDESONIDE\FORMOTEROL FUMARATE DIHYDRATE
     Dosage: 1-2 PUFFS TO BE TAKEN TWICE DAILY AND AN EXTRA
     Route: 055
     Dates: start: 20210423
  38. TRIMETHOPRIM [Concomitant]
     Active Substance: TRIMETHOPRIM
     Indication: Urinary tract infection
     Dosage: 1 DOSAGE FORM, BID (TAKE ONE TWICE DAILY)
     Route: 065
     Dates: start: 20210423
  39. Xyloproct [Concomitant]
     Dosage: APPLY, AS NECESSARY
     Route: 065
     Dates: start: 20210423
  40. ZOLPIDEM [Concomitant]
     Active Substance: ZOLPIDEM TARTRATE
     Indication: Sleep disorder
     Dosage: 1 DOSAGE FORM, QD (ONE, AT NIGHT FOR SLEEP)
     Route: 065
     Dates: start: 20210423
  41. ZOVIRAX [Concomitant]
     Active Substance: ACYCLOVIR
     Indication: Prophylaxis
     Dosage: 1 DOSAGE FORM, BID (AS PREVENTION, INCREASE)
     Route: 065
     Dates: start: 20210423

REACTIONS (2)
  - Swelling face [Recovered/Resolved]
  - Palpitations [Recovered/Resolved]
